FAERS Safety Report 5112466-2 (Version None)
Quarter: 2006Q3

REPORT INFORMATION
  Report Type: 
  Country: None (occurrence: None)
  Receive Date: 20060731
  Receipt Date: 20060630
  Transmission Date: 20061208
  Serious: No
  Sender: FDA-Public Use
  Company Number: 2006PV016867

PATIENT
  Age: 65 Year
  Sex: Female

DRUGS (4)
  1. BYETTA [Suspect]
     Indication: DIABETES MELLITUS
     Dosage: 5MCG;BID; SC
     Route: 058
     Dates: start: 20060601
  2. ACTOS [Concomitant]
  3. METFORMIN [Concomitant]
  4. LEXAPRO [Concomitant]

REACTIONS (1)
  - CHEST PAIN [None]
